FAERS Safety Report 8988716 (Version 1)
Quarter: 2012Q4

REPORT INFORMATION
  Report Type: 
  Country: US (occurrence: US)
  Receive Date: 20121228
  Receipt Date: 20121228
  Transmission Date: 20130627
  Serious: Yes (Other)
  Sender: FDA-Public Use
  Company Number: US-BRISTOL-MYERS SQUIBB COMPANY-17228099

PATIENT
  Age: 63 Year
  Sex: Male
  Weight: 117.91 kg

DRUGS (1)
  1. SPRYCEL [Suspect]
     Indication: CHRONIC LEUKAEMIA

REACTIONS (2)
  - Chronic obstructive pulmonary disease [Unknown]
  - Muscle strain [Recovering/Resolving]
